FAERS Safety Report 14838350 (Version 1)
Quarter: 2018Q2

REPORT INFORMATION
  Report Type: Spontaneous
  Country: JP (occurrence: JP)
  Receive Date: 20180502
  Receipt Date: 20180502
  Transmission Date: 20180711
  Serious: Yes (Other)
  Sender: FDA-Public Use
  Company Number: JP-BAYER-2018-083551

PATIENT
  Sex: Female

DRUGS (11)
  1. FERROUS CITRATE [Concomitant]
     Active Substance: FERROUS CITRATE
  2. DAIKENTYUTO [Concomitant]
     Active Substance: HERBALS
  3. MAGMITT [Concomitant]
     Active Substance: MAGNESIUM OXIDE
  4. QUETIAPINE. [Concomitant]
     Active Substance: QUETIAPINE
  5. QUETIAPINE FUMARATE. [Concomitant]
     Active Substance: QUETIAPINE FUMARATE
  6. BOUFUUTSUUSHOUSAN [Concomitant]
     Active Substance: HERBALS
  7. LUNESTA [Concomitant]
     Active Substance: ESZOPICLONE
  8. TOPINASAL [Concomitant]
  9. BENZALIN [Concomitant]
     Active Substance: NITRAZEPAM
  10. YAZ [Suspect]
     Active Substance: DROSPIRENONE\ETHINYL ESTRADIOL
     Route: 048
  11. MIYA-BM [Concomitant]
     Active Substance: CLOSTRIDIUM BUTYRICUM SPORES STRAIN M-55

REACTIONS (2)
  - Dissociative disorder [None]
  - Bipolar disorder [None]
